FAERS Safety Report 9320362 (Version 1)
Quarter: 2013Q2

REPORT INFORMATION
  Report Type: Spontaneous
  Country: GB (occurrence: GB)
  Receive Date: 20130530
  Receipt Date: 20130530
  Transmission Date: 20140414
  Serious: Yes (Death, Other)
  Sender: FDA-Public Use
  Company Number: GB-B.I. PHARMACEUTICALS,INC./RIDGEFIELD-2013-UK-01142UK

PATIENT
  Age: 70 Year
  Sex: Male
  Weight: 106.82 kg

DRUGS (6)
  1. TRAJENTA [Suspect]
     Indication: DIABETES MELLITUS
     Dosage: 5 MG
     Route: 048
     Dates: start: 20130325, end: 20130419
  2. CO TENIDONE [Concomitant]
  3. GLICLAZIDE [Concomitant]
  4. METFORMIN HYDROCHLORIDE [Concomitant]
  5. PARACETAMOL [Concomitant]
  6. SIMVASTATIN [Concomitant]

REACTIONS (1)
  - Myocardial infarction [Fatal]
